FAERS Safety Report 13647487 (Version 9)
Quarter: 2023Q2

REPORT INFORMATION
  Report Type: Spontaneous
  Country: US (occurrence: US)
  Receive Date: 20170613
  Receipt Date: 20230630
  Transmission Date: 20230722
  Serious: Yes (Other)
  Sender: FDA-Public Use
  Company Number: US-PFIZER INC-2017249952

PATIENT
  Age: 14 Year
  Sex: Male
  Weight: 54.875 kg

DRUGS (5)
  1. BENEFIX [Suspect]
     Active Substance: COAGULATION FACTOR IX RECOMBINANT HUMAN\ISOPROPYL ALCOHOL
     Indication: Factor IX deficiency
     Dosage: 610 IU +5% # OF DOSES: 3
  2. BENEFIX [Suspect]
     Active Substance: COAGULATION FACTOR IX RECOMBINANT HUMAN\ISOPROPYL ALCOHOL
     Dosage: 5660 UNITS (+5%) = 100 UNITS/KG DAILY ON DEMAND
  3. BENEFIX [Suspect]
     Active Substance: COAGULATION FACTOR IX RECOMBINANT HUMAN\ISOPROPYL ALCOHOL
     Dosage: 5500 IU +/- 5% # OF DOSES: 4/ 5500 UNITS (+/- 5%) = 100 U/KG DOSING DAILY
  4. BENEFIX [Suspect]
     Active Substance: COAGULATION FACTOR IX RECOMBINANT HUMAN\ISOPROPYL ALCOHOL
     Dosage: DOSING AT 68 KG/ 6800 UNITS (+5%) = 100 U/KG DAILY ON DEMAND
  5. BENEFIX [Suspect]
     Active Substance: COAGULATION FACTOR IX RECOMBINANT HUMAN\ISOPROPYL ALCOHOL
     Dosage: 6800 IU (+/-10%) = 100 IU / KG X 1 DAILY ON DEMAND

REACTIONS (4)
  - Haemorrhage [Unknown]
  - Haemarthrosis [Unknown]
  - Ligament sprain [Unknown]
  - Weight increased [Unknown]
